FAERS Safety Report 5475158-6 (Version None)
Quarter: 2007Q4

REPORT INFORMATION
  Report Type: 
  Country: None (occurrence: None)
  Receive Date: 20071002
  Receipt Date: 20070911
  Transmission Date: 20080405
  Serious: Yes (Hospitalization, Other)
  Sender: FDA-Public Use
  Company Number: DE-PFIZER INC-2007072297

PATIENT
  Sex: Male

DRUGS (4)
  1. CABASERIL [Suspect]
     Indication: PARKINSON'S DISEASE
     Dosage: DAILY DOSE:2MG
     Route: 048
     Dates: start: 20040101, end: 20070801
  2. STALEVO 100 [Concomitant]
  3. ALL OTHER THERAPEUTIC PRODUCTS [Concomitant]
  4. PK-MERZ [Concomitant]

REACTIONS (3)
  - OEDEMA PERIPHERAL [None]
  - PERICARDIAL EFFUSION [None]
  - WEIGHT INCREASED [None]
